FAERS Safety Report 9457628 (Version 1)
Quarter: 2013Q3

REPORT INFORMATION
  Report Type: Spontaneous
  Country: US (occurrence: US)
  Receive Date: 20130814
  Receipt Date: 20130814
  Transmission Date: 20140515
  Serious: No
  Sender: FDA-Public Use
  Company Number: US-PFIZER INC-2013232061

PATIENT
  Age: 63 Year
  Sex: Female
  Weight: 92.97 kg

DRUGS (11)
  1. SUTENT [Suspect]
     Indication: RENAL CELL CARCINOMA
     Dosage: 50 MG, 1X/DAY
     Route: 048
     Dates: start: 201307
  2. LEVEMIR [Concomitant]
     Dosage: UNK
  3. METFORMIN [Concomitant]
     Dosage: UNK
  4. LORAZEPAM [Concomitant]
     Dosage: UNK
  5. CELEXA [Concomitant]
     Dosage: UNK
  6. LASIX [Concomitant]
     Dosage: UNK, AS NEEDED
  7. PERCOCET [Concomitant]
     Dosage: UNK
  8. TRAZODONE [Concomitant]
     Dosage: UNK
  9. ZOCOR [Concomitant]
     Dosage: UNK
  10. NADOLOL [Concomitant]
     Dosage: UNK
  11. ZESTORETIC [Concomitant]
     Dosage: UNK

REACTIONS (1)
  - Nausea [Recovering/Resolving]
